FAERS Safety Report 7529326-X (Version None)
Quarter: 2011Q2

REPORT INFORMATION
  Report Type: 
  Country: None (occurrence: None)
  Receive Date: 20110607
  Receipt Date: 20050725
  Transmission Date: 20111010
  Serious: Yes (Life-Threatening, Hospitalization)
  Sender: FDA-Public Use
  Company Number: PHFR2005GB01418

PATIENT
  Sex: Female

DRUGS (3)
  1. AMISULPRIDE [Concomitant]
     Indication: PSYCHOTIC DISORDER
     Dosage: 550 MG/DAY
     Route: 048
  2. LITHIUM CITRATE [Interacting]
     Indication: SCHIZOAFFECTIVE DISORDER
     Dosage: 25 ML/DAY
     Route: 048
  3. CLOZARIL [Suspect]
     Indication: SCHIZOPHRENIA, PARANOID TYPE
     Dosage: 750 MG/DAY
     Route: 048
     Dates: start: 19990517

REACTIONS (4)
  - RENAL FAILURE [None]
  - DRUG INTERACTION [None]
  - ANTIPSYCHOTIC DRUG LEVEL INCREASED [None]
  - TOXICITY TO VARIOUS AGENTS [None]
